FAERS Safety Report 15251666 (Version 1)
Quarter: 2018Q3

REPORT INFORMATION
  Report Type: Spontaneous
  Country: US (occurrence: US)
  Receive Date: 20180717
  Receipt Date: 20180717
  Transmission Date: 20181010
  Serious: Yes (Hospitalization)
  Sender: FDA-Public Use
  Company Number: None

PATIENT
  Age: 50 Year
  Sex: Female

DRUGS (1)
  1. OPSUMIT [Suspect]
     Active Substance: MACITENTAN
     Indication: PULMONARY HYPERTENSION
     Dates: start: 20180626

REACTIONS (4)
  - Pancytopenia [None]
  - Atrial thrombosis [None]
  - Infection [None]
  - Connective tissue disorder [None]

NARRATIVE: CASE EVENT DATE: 20180709
